APPROVED DRUG PRODUCT: NIFEDIPINE
Active Ingredient: NIFEDIPINE
Strength: 90MG
Dosage Form/Route: TABLET, EXTENDED RELEASE;ORAL
Application: A210614 | Product #003 | TE Code: AB2
Applicant: NOVAST LABORATORIES LTD
Approved: Mar 12, 2019 | RLD: No | RS: No | Type: RX